FAERS Safety Report 6073030-4 (Version None)
Quarter: 2009Q1

REPORT INFORMATION
  Report Type: 
  Country: None (occurrence: None)
  Receive Date: 20090209
  Receipt Date: 20090209
  Transmission Date: 20090719
  Serious: Yes (Other)
  Sender: FDA-Public Use
  Company Number: None

PATIENT
  Age: 66 Year
  Sex: Female
  Weight: 75 kg

DRUGS (2)
  1. AVAPRO [Suspect]
     Indication: HYPERTENSION
     Dosage: 300MG  1 BUCCAL
     Route: 002
     Dates: start: 20060520, end: 20090207
  2. IRBESARTAN [Concomitant]

REACTIONS (2)
  - MYALGIA [None]
  - MYOSITIS [None]
